FAERS Safety Report 12549704 (Version 1)
Quarter: 2016Q3

REPORT INFORMATION
  Report Type: Spontaneous
  Country: CN (occurrence: CN)
  Receive Date: 20160712
  Receipt Date: 20160712
  Transmission Date: 20161109
  Serious: Yes (Other)
  Sender: FDA-Public Use
  Company Number: CN-PFIZER INC-2016334893

PATIENT
  Age: 72 Year
  Sex: Male
  Weight: 47.5 kg

DRUGS (5)
  1. DEXAMETHASONE ACETATE [Suspect]
     Active Substance: DEXAMETHASONE ACETATE
     Indication: LUNG NEOPLASM MALIGNANT
     Dosage: 4.125 MG, 1X/DAY
     Route: 048
     Dates: start: 20160224, end: 20160226
  2. SODIUM CHLORIDE. [Concomitant]
     Active Substance: SODIUM CHLORIDE
     Dosage: 20 ML, 1X/DAY
     Route: 041
     Dates: start: 20160223, end: 20160229
  3. BUDESONIDE. [Suspect]
     Active Substance: BUDESONIDE
     Indication: WHEEZING
     Dosage: 1 MG, 2X/DAY
     Dates: start: 20160223, end: 20160229
  4. METHYLPREDNISOLONE SODIUM SUCCINATE. [Suspect]
     Active Substance: METHYLPREDNISOLONE SODIUM SUCCINATE
     Indication: WHEEZING
     Dosage: 40 MG, 1X/DAY
     Route: 041
     Dates: start: 20160223, end: 20160229
  5. IPRATROPIUM [Concomitant]
     Active Substance: IPRATROPIUM
     Indication: WHEEZING
     Dosage: 2.5 ML, 2X/DAY
     Route: 055
     Dates: start: 20160223, end: 20160229

REACTIONS (1)
  - Leukoplakia oral [Not Recovered/Not Resolved]

NARRATIVE: CASE EVENT DATE: 20160229
